FAERS Safety Report 11272242 (Version 1)
Quarter: 2015Q2

REPORT INFORMATION
  Report Type: Spontaneous
  Country: US (occurrence: None)
  Receive Date: 20150625
  Receipt Date: 20150625
  Transmission Date: 20150821
  Serious: No
  Sender: FDA-Public Use
  Company Number: A-US2014-108920

PATIENT
  Age: 54 Year
  Sex: Female

DRUGS (3)
  1. RIOCIGUAT [Concomitant]
     Active Substance: RIOCIGUAT
  2. OPSUMIT [Suspect]
     Active Substance: MACITENTAN
     Indication: PULMONARY HYPERTENSION
     Route: 048
     Dates: start: 20141016
  3. METFORMIN [Suspect]
     Active Substance: METFORMIN HYDROCHLORIDE
     Indication: PRODUCT USED FOR UNKNOWN INDICATION
     Route: 048

REACTIONS (10)
  - Malaise [None]
  - Incorrect dose administered [None]
  - Vomiting [None]
  - Fatigue [None]
  - Vaginal discharge [None]
  - Haematochezia [None]
  - Respiratory tract congestion [None]
  - Headache [None]
  - Diarrhoea [None]
  - Colitis ulcerative [None]

NARRATIVE: CASE EVENT DATE: 20141117
